FAERS Safety Report 4317329-8 (Version None)
Quarter: 2004Q1

REPORT INFORMATION
  Report Type: 
  Country: None (occurrence: None)
  Receive Date: 20040315
  Receipt Date: 20040315
  Transmission Date: 20041129
  Serious: Yes (Hospitalization)
  Sender: FDA-Public Use
  Company Number: None

PATIENT
  Age: 64 Year
  Sex: Male
  Weight: 101.6057 kg

DRUGS (1)
  1. GLEEVEC [Suspect]
     Dosage: 600 MG PO
     Route: 048
     Dates: start: 20040128, end: 20040217

REACTIONS (1)
  - DEHYDRATION [None]
